FAERS Safety Report 16063946 (Version 2)
Quarter: 2019Q2

REPORT INFORMATION
  Report Type: Spontaneous
  Country: NL (occurrence: NL)
  Receive Date: 20190312
  Receipt Date: 20190408
  Transmission Date: 20190711
  Serious: Yes (Other)
  Sender: FDA-Public Use
  Company Number: NL-009507513-1903NLD004245

PATIENT
  Sex: Female

DRUGS (1)
  1. NUVARING [Suspect]
     Active Substance: ETHINYL ESTRADIOL\ETONOGESTREL
     Indication: CONTRACEPTION
     Dosage: ONE RING
     Route: 067

REACTIONS (4)
  - Pregnancy with contraceptive device [Unknown]
  - Incorrect product administration duration [Unknown]
  - Unintended pregnancy [Unknown]
  - No adverse event [Unknown]
